FAERS Safety Report 6973947-X (Version None)
Quarter: 2010Q3

REPORT INFORMATION
  Report Type: 
  Country: None (occurrence: None)
  Receive Date: 20100907
  Receipt Date: 20100820
  Transmission Date: 20110219
  Serious: Yes (Hospitalization, Other)
  Sender: FDA-Public Use
  Company Number: 1000015992

PATIENT
  Age: 55 Year
  Sex: Male

DRUGS (4)
  1. CELEXA [Suspect]
  2. VERAPAMIL [Concomitant]
  3. ATORVASTATIN CALCIUM [Concomitant]
  4. METAXALONE [Concomitant]

REACTIONS (4)
  - CEREBRAL VASOCONSTRICTION [None]
  - PHOTOPHOBIA [None]
  - SUBARACHNOID HAEMORRHAGE [None]
  - VASCULITIS CEREBRAL [None]
